FAERS Safety Report 7333118-4 (Version None)
Quarter: 2011Q1

REPORT INFORMATION
  Report Type: 
  Country: None (occurrence: None)
  Receive Date: 20110304
  Receipt Date: 20110228
  Transmission Date: 20110831
  Serious: Yes (Death, Hospitalization, Other)
  Sender: FDA-Public Use
  Company Number: PHEH2005US07148

PATIENT
  Sex: Female
  Weight: 74.829 kg

DRUGS (41)
  1. AREDIA [Suspect]
     Dosage: 30 MG, UNK
     Dates: start: 20010316, end: 20040101
  2. ZOMETA [Suspect]
     Indication: BREAST CANCER METASTATIC
     Dosage: 4 MG EVERY 3 WEEKS
     Dates: start: 20040101, end: 20050623
  3. ANCEF [Concomitant]
  4. LEVOTHYROXINE [Concomitant]
  5. ALOXI [Concomitant]
     Dosage: 0.25 MG, UNK
  6. TAXOL [Concomitant]
     Dosage: UNK
     Dates: start: 20010101
  7. PROZAC [Concomitant]
     Dosage: UNK
  8. ZOLOFT [Concomitant]
     Dosage: UNK
  9. CIPROFLOXACIN [Concomitant]
  10. COUMADIN [Concomitant]
     Dosage: UNK
  11. NABUMETONE [Concomitant]
  12. SKELAXIN [Concomitant]
  13. PROCRIT [Concomitant]
  14. LEXAPRO [Concomitant]
     Dosage: 10 MG, UNK
  15. FASLODEX [Concomitant]
  16. CELEBREX [Concomitant]
  17. FAMVIR                                  /UNK/ [Concomitant]
  18. TYLOX [Concomitant]
  19. CEREBYX [Concomitant]
  20. LORTAB [Concomitant]
  21. CEFAZOLIN [Concomitant]
  22. AMOXICILLIN [Concomitant]
  23. LASIX [Concomitant]
  24. ZOLADEX [Concomitant]
     Indication: BREAST CANCER
     Dosage: 3.6 / QMOS
     Route: 058
     Dates: start: 20050301
  25. ADVIL LIQUI-GELS [Concomitant]
  26. ARIMIDEX [Concomitant]
     Dosage: UNK
  27. ACYCLOVIR [Concomitant]
  28. OXYCODONE HCL AND ACETAMINOPHEN [Concomitant]
  29. KEFLEX [Concomitant]
  30. NEXIUM [Concomitant]
     Dosage: 20 MG, UNK
  31. ATIVAN [Concomitant]
     Dosage: UNK
  32. METHYLPREDNISOLONE [Concomitant]
  33. TAXOL [Concomitant]
     Dosage: UNK
     Dates: start: 20040101
  34. HYDROCHLOROTHIAZIDE [Concomitant]
     Dosage: UNK
  35. METHOCARBAMOL [Concomitant]
  36. XELODA [Concomitant]
     Dosage: 3500 MG, UNK
     Route: 048
     Dates: end: 20050301
  37. GEMZAR [Concomitant]
     Dosage: 1700MG QWK
     Dates: start: 20050301
  38. DECADRON [Concomitant]
     Dosage: 5 MG, UNK
  39. SYNTHROID [Concomitant]
  40. OMEPRAZOLE [Concomitant]
  41. CELEXA [Concomitant]
     Dosage: UNK

REACTIONS (100)
  - BONE PAIN [None]
  - MOUTH ULCERATION [None]
  - DEFORMITY [None]
  - ANGINA PECTORIS [None]
  - ANAEMIA [None]
  - PERIARTHRITIS [None]
  - ORAL PAIN [None]
  - MENTAL STATUS CHANGES [None]
  - HYPERNATRAEMIA [None]
  - METABOLIC ALKALOSIS [None]
  - LETHARGY [None]
  - ASCITES [None]
  - LEUKOPENIA [None]
  - DECREASED APPETITE [None]
  - PETECHIAE [None]
  - CONTUSION [None]
  - BONE LESION [None]
  - HYPOKALAEMIA [None]
  - HYPOTHYROIDISM [None]
  - ANXIETY [None]
  - GENERAL PHYSICAL HEALTH DETERIORATION [None]
  - NEOPLASM MALIGNANT [None]
  - HEADACHE [None]
  - OEDEMA [None]
  - TACHYCARDIA [None]
  - ATELECTASIS [None]
  - ENCEPHALOPATHY [None]
  - PAIN [None]
  - HYPOPHAGIA [None]
  - TEMPOROMANDIBULAR JOINT SYNDROME [None]
  - TOOTH IMPACTED [None]
  - VENOUS STENOSIS [None]
  - VOMITING [None]
  - MUSCULOSKELETAL DISORDER [None]
  - EPISTAXIS [None]
  - METASTASES TO SKIN [None]
  - GINGIVAL PAIN [None]
  - LIFE EXPECTANCY SHORTENED [None]
  - MASTICATION DISORDER [None]
  - JAUNDICE [None]
  - FLUID OVERLOAD [None]
  - AZOTAEMIA [None]
  - ILEUS [None]
  - HYPOVOLAEMIA [None]
  - CONVULSION [None]
  - MEDIASTINAL DISORDER [None]
  - IMPAIRED HEALING [None]
  - EAR PAIN [None]
  - DECREASED INTEREST [None]
  - SEPSIS [None]
  - PAIN IN EXTREMITY [None]
  - FUNGAL INFECTION [None]
  - CEREBRAL ISCHAEMIA [None]
  - GASTROOESOPHAGEAL REFLUX DISEASE [None]
  - RENAL FAILURE ACUTE [None]
  - OSTEONECROSIS OF JAW [None]
  - SWELLING [None]
  - BONE DISORDER [None]
  - DEEP VEIN THROMBOSIS [None]
  - TOOTH FRACTURE [None]
  - LUNG INFILTRATION [None]
  - PALMAR-PLANTAR ERYTHRODYSAESTHESIA SYNDROME [None]
  - HYPERCALCAEMIA [None]
  - ACUTE RESPIRATORY DISTRESS SYNDROME [None]
  - MOUTH HAEMORRHAGE [None]
  - DIARRHOEA [None]
  - BRADYCARDIA [None]
  - PANCYTOPENIA [None]
  - MUSCULAR WEAKNESS [None]
  - RED BLOOD CELL SCHISTOCYTES PRESENT [None]
  - FALL [None]
  - HYPERTENSION [None]
  - MALNUTRITION [None]
  - INFECTION [None]
  - METASTASES TO BONE [None]
  - OSTEOLYSIS [None]
  - BREAST CANCER METASTATIC [None]
  - ACUTE RESPIRATORY FAILURE [None]
  - PNEUMONIA BACTERIAL [None]
  - CONFUSIONAL STATE [None]
  - CEREBRAL HAEMORRHAGE [None]
  - DYSPNOEA [None]
  - BREATH SOUNDS ABNORMAL [None]
  - NAUSEA [None]
  - OVARIAN CYST [None]
  - FATIGUE [None]
  - PHOTOPSIA [None]
  - THROMBOTIC MICROANGIOPATHY [None]
  - THROMBOTIC THROMBOCYTOPENIC PURPURA [None]
  - HYPOAESTHESIA ORAL [None]
  - BONE FORMATION INCREASED [None]
  - EMOTIONAL DISTRESS [None]
  - GASTROINTESTINAL SOUNDS ABNORMAL [None]
  - OCCULT BLOOD POSITIVE [None]
  - CANDIDIASIS [None]
  - RALES [None]
  - COUGH [None]
  - PLEURAL EFFUSION [None]
  - HEAD INJURY [None]
  - ARTHROPATHY [None]
